FAERS Safety Report 25274060 (Version 1)
Quarter: 2025Q2

REPORT INFORMATION
  Report Type: Spontaneous
  Country: US (occurrence: US)
  Receive Date: 20250506
  Receipt Date: 20250506
  Transmission Date: 20250717
  Serious: No
  Sender: Haleon PLC
  Company Number: US-002147023-NVSC2023US120282

PATIENT
  Sex: Female
  Weight: 74.39 kg

DRUGS (9)
  1. TERBINAFINE [Suspect]
     Active Substance: TERBINAFINE
     Indication: Product used for unknown indication
     Route: 065
  2. FERROUS FUMARATE [Suspect]
     Active Substance: FERROUS FUMARATE
     Indication: Product used for unknown indication
  3. ISOTRETINOIN [Concomitant]
     Active Substance: ISOTRETINOIN
     Indication: Acne
  4. CLOBETASOL [Suspect]
     Active Substance: CLOBETASOL
     Indication: Product used for unknown indication
  5. ALBENDAZOLE [Suspect]
     Active Substance: ALBENDAZOLE
     Indication: Product used for unknown indication
  6. AZELASTINE [Suspect]
     Active Substance: AZELASTINE
     Indication: Product used for unknown indication
  7. MINOCYCLINE [Suspect]
     Active Substance: MINOCYCLINE HYDROCHLORIDE
     Indication: Product used for unknown indication
  8. MONTELUKAST [Suspect]
     Active Substance: MONTELUKAST
     Indication: Product used for unknown indication
  9. FLUOCINOLONE ACETONIDE [Suspect]
     Active Substance: FLUOCINOLONE ACETONIDE
     Indication: Product used for unknown indication

REACTIONS (3)
  - Skin plaque [Unknown]
  - Drug ineffective [Unknown]
  - Potassium hydroxide preparation positive [Unknown]
